FAERS Safety Report 15614715 (Version 1)
Quarter: 2018Q4

REPORT INFORMATION
  Report Type: Spontaneous
  Country: RO (occurrence: RO)
  Receive Date: 20181113
  Receipt Date: 20181113
  Transmission Date: 20190205
  Serious: Yes (Other)
  Sender: FDA-Public Use
  Company Number: RO-BAXTER-2018BAX027346

PATIENT
  Age: 30 Year
  Sex: Female

DRUGS (6)
  1. ENDOXAN 200 MG PULBERE PENTRU SOLUTIE PERFUZABILA/INJECTABILA [Suspect]
     Active Substance: CYCLOPHOSPHAMIDE
     Indication: SYSTEMIC LUPUS ERYTHEMATOSUS
     Dosage: 600MG INTRAVENOUS/ 2 WEEKS, 3 PULSES
     Route: 042
  2. PREDNISONE. [Suspect]
     Active Substance: PREDNISONE
     Indication: GLOMERULONEPHRITIS PROLIFERATIVE
     Dosage: 1MG/KG FOR 30 DAYS WITH GRADUAL DOSE REDUCTION
     Route: 065
  3. PREDNISONE. [Suspect]
     Active Substance: PREDNISONE
     Indication: PRODUCT USED FOR UNKNOWN INDICATION
     Dosage: MG/KG 30 WITH A DECREASE OF 10MG/DAY FROM THE DOSE TO 2 WEEKS, UNTIL THE DOSE IS 40MG/DAY, THEN THE
     Route: 065
  4. ENDOXAN 200 MG PULBERE PENTRU SOLUTIE PERFUZABILA/INJECTABILA [Suspect]
     Active Substance: CYCLOPHOSPHAMIDE
     Indication: GLOMERULONEPHRITIS PROLIFERATIVE
     Dosage: 600MG INTRAVENOUS/ 2 WEEKS, 3 PULSES
     Route: 042
  5. PREDNISONE. [Suspect]
     Active Substance: PREDNISONE
     Indication: SYSTEMIC LUPUS ERYTHEMATOSUS
     Dosage: 10MG/DAY EVERY 2 WEEKS UP TO A DOSE OF 40MG/KG
     Route: 065
  6. METHYLPREDNISOLONE SODIUM SUCCINATE. [Suspect]
     Active Substance: METHYLPREDNISOLONE SODIUM SUCCINATE
     Indication: PRODUCT USED FOR UNKNOWN INDICATION
     Dosage: 1 G, FOR 3 DAYS
     Route: 042

REACTIONS (19)
  - Anaemia [Unknown]
  - Amenorrhoea [Unknown]
  - Hypocalcaemia [Unknown]
  - Metabolic acidosis [Unknown]
  - Affective disorder [Unknown]
  - Nephrotic syndrome [Unknown]
  - Anti-neutrophil cytoplasmic antibody positive vasculitis [Unknown]
  - Condition aggravated [Unknown]
  - Secondary hypertension [Unknown]
  - Hyperuricaemia [Unknown]
  - Hypercholesterolaemia [Unknown]
  - Diabetes mellitus [Unknown]
  - Lung disorder [Unknown]
  - Hypoproteinaemia [Unknown]
  - Hypoalbuminaemia [Unknown]
  - Hyperparathyroidism secondary [Unknown]
  - Chronic kidney disease [Unknown]
  - Antiphospholipid syndrome [Unknown]
  - Hyperphosphataemia [Unknown]
